FAERS Safety Report 14242401 (Version 5)
Quarter: 2019Q1

REPORT INFORMATION
  Report Type: Spontaneous
  Country: US (occurrence: US)
  Receive Date: 20171201
  Receipt Date: 20190211
  Transmission Date: 20190417
  Serious: No
  Sender: FDA-Public Use
  Company Number: US-PFIZER INC-2017513800

PATIENT
  Age: 59 Year
  Sex: Female

DRUGS (1)
  1. LYRICA [Suspect]
     Active Substance: PREGABALIN
     Dosage: UNK

REACTIONS (10)
  - Asthenia [Unknown]
  - Withdrawal syndrome [Unknown]
  - Urticaria [Unknown]
  - Nausea [Unknown]
  - Decreased appetite [Unknown]
  - Viral infection [Unknown]
  - Vomiting [Unknown]
  - Product dose omission [Unknown]
  - Feeling abnormal [Unknown]
  - Malaise [Unknown]

NARRATIVE: CASE EVENT DATE: 20171013
